FAERS Safety Report 6990042-4 (Version None)
Quarter: 2010Q3

REPORT INFORMATION
  Report Type: 
  Country: None (occurrence: None)
  Receive Date: 20100916
  Receipt Date: 20100412
  Transmission Date: 20110219
  Serious: Yes (Other)
  Sender: FDA-Public Use
  Company Number: MX-PFIZER INC-2010046558

PATIENT
  Sex: Female

DRUGS (1)
  1. LYRICA [Suspect]
     Indication: FIBROMYALGIA
     Dosage: 75 MG, UNK
     Dates: start: 20100301

REACTIONS (4)
  - BLOOD PRESSURE INCREASED [None]
  - CHILLS [None]
  - HEADACHE [None]
  - PARAESTHESIA [None]
